FAERS Safety Report 7908109-2 (Version None)
Quarter: 2011Q4

REPORT INFORMATION
  Report Type: 
  Country: None (occurrence: None)
  Receive Date: 20111111
  Receipt Date: 20111103
  Transmission Date: 20120403
  Serious: Yes (Death, Hospitalization)
  Sender: FDA-Public Use
  Company Number: US-BIOGENIDEC-2011BI040296

PATIENT
  Age: 56 Year
  Sex: Female

DRUGS (1)
  1. AVONEX [Suspect]
     Indication: MULTIPLE SCLEROSIS
     Route: 030
     Dates: start: 20060313, end: 20101001

REACTIONS (4)
  - MULTIPLE SCLEROSIS [None]
  - ENDOTRACHEAL INTUBATION COMPLICATION [None]
  - LARGE INTESTINE PERFORATION [None]
  - PNEUMONIA [None]
